FAERS Safety Report 7451391-9 (Version None)
Quarter: 2011Q2

REPORT INFORMATION
  Report Type: 
  Country: None (occurrence: None)
  Receive Date: 20110502
  Receipt Date: 20110426
  Transmission Date: 20111010
  Serious: Yes (Death, Hospitalization)
  Sender: FDA-Public Use
  Company Number: IT-PFIZER INC-2011090219

PATIENT
  Age: 19 Year
  Sex: Female

DRUGS (3)
  1. ARACYTIN [Suspect]
     Indication: ACUTE LYMPHOCYTIC LEUKAEMIA RECURRENT
     Dosage: 5 G, ALTERNATE DAY
     Route: 042
     Dates: start: 20110203, end: 20110211
  2. ZAVEDOS [Suspect]
     Dosage: 29 MG, UNK
     Route: 042
     Dates: start: 20110202, end: 20110209
  3. VINCRISTINA PFIZER ITALIA [Suspect]
     Dosage: 2 MG, UNK
     Route: 040
     Dates: start: 20110203, end: 20110210

REACTIONS (4)
  - CARDIO-RESPIRATORY ARREST [None]
  - PARAESTHESIA [None]
  - GASTROINTESTINAL HAEMORRHAGE [None]
  - MUCOSAL INFLAMMATION [None]
